FAERS Safety Report 20539186 (Version 1)
Quarter: 2022Q1

REPORT INFORMATION
  Report Type: Report from Study
  Country: CO (occurrence: CO)
  Receive Date: 20220302
  Receipt Date: 20220302
  Transmission Date: 20220424
  Serious: Yes (Hospitalization, Other)
  Sender: FDA-Public Use
  Company Number: CO-JNJFOC-20210816879

PATIENT
  Sex: Male
  Weight: 100 kg

DRUGS (9)
  1. INVEGA SUSTENNA [Suspect]
     Active Substance: PALIPERIDONE PALMITATE
     Indication: Schizophrenia
     Route: 030
     Dates: start: 20210601
  2. INVEGA SUSTENNA [Suspect]
     Active Substance: PALIPERIDONE PALMITATE
  3. INVEGA SUSTENNA [Suspect]
     Active Substance: PALIPERIDONE PALMITATE
  4. CLOZAPINE [Concomitant]
     Active Substance: CLOZAPINE
     Route: 065
  5. CLOZAPINE [Concomitant]
     Active Substance: CLOZAPINE
  6. BIPERIDEN [Concomitant]
     Active Substance: BIPERIDEN
     Route: 065
  7. OLANZAPINE [Concomitant]
     Active Substance: OLANZAPINE
  8. METOPROLOL [Concomitant]
     Active Substance: METOPROLOL
  9. TRAZODONE [Concomitant]
     Active Substance: TRAZODONE HYDROCHLORIDE

REACTIONS (11)
  - Pollakiuria [Recovering/Resolving]
  - Insomnia [Recovering/Resolving]
  - Hypersomnia [Not Recovered/Not Resolved]
  - Asymptomatic COVID-19 [Recovering/Resolving]
  - Abnormal behaviour [Recovering/Resolving]
  - Feelings of worthlessness [Not Recovered/Not Resolved]
  - Memory impairment [Recovering/Resolving]
  - Eating disorder [Recovering/Resolving]
  - Anxiety [Recovering/Resolving]
  - Inappropriate schedule of product administration [Unknown]
  - Off label use [Unknown]

NARRATIVE: CASE EVENT DATE: 20210101
